FAERS Safety Report 8321641-5 (Version None)
Quarter: 2012Q2

REPORT INFORMATION
  Report Type: 
  Country: None (occurrence: None)
  Receive Date: 20120430
  Receipt Date: 20091030
  Transmission Date: 20120825
  Serious: No
  Sender: FDA-Public Use
  Company Number: US-TEVA-2009011993

PATIENT
  Sex: Female
  Weight: 47.216 kg

DRUGS (5)
  1. NUVIGIL [Suspect]
     Indication: DEPRESSION
  2. NUVIGIL [Suspect]
     Indication: ASTHENIA
     Dosage: 150 MILLIGRAM;
     Route: 048
     Dates: start: 20091028
  3. GABAPENTIN [Concomitant]
  4. PROZAC [Concomitant]
     Dates: start: 20090701
  5. SYNTHROID [Concomitant]

REACTIONS (1)
  - DRUG INEFFECTIVE FOR UNAPPROVED INDICATION [None]
